FAERS Safety Report 4560873-9 (Version None)
Quarter: 2005Q1

REPORT INFORMATION
  Report Type: 
  Country: None (occurrence: None)
  Receive Date: 20050121
  Receipt Date: 20050112
  Transmission Date: 20050727
  Serious: Yes (Other)
  Sender: FDA-Public Use
  Company Number: 2005-01-1080

PATIENT
  Age: 3 Year
  Sex: Male

DRUGS (6)
  1. GENTAMICIN [Suspect]
     Dosage: 3 DROPS TID OTIC
  2. . [Concomitant]
  3. CORTISPORIN [Suspect]
     Dosage: 3 DROPS TID OTIC
  4. CORTISPORIN [Concomitant]
  5. SOFRACORT OTIC SOLUTION [Suspect]
     Dosage: 3 DROPS TID OTIC
  6. SOFRACORT OTIC SOLUTION [Concomitant]

REACTIONS (1)
  - HYPOACUSIS [None]
